FAERS Safety Report 24262769 (Version 1)
Quarter: 2024Q3

REPORT INFORMATION
  Report Type: Spontaneous
  Country: US (occurrence: US)
  Receive Date: 20240829
  Receipt Date: 20240829
  Transmission Date: 20241016
  Serious: No
  Sender: IMMUNOGEN
  Company Number: US-IMMUNOGEN, INC.-US-IMGN-24-00490

PATIENT
  Age: 68 Year
  Sex: Female

DRUGS (1)
  1. ELAHERE [Suspect]
     Active Substance: MIRVETUXIMAB SORAVTANSINE-GYNX
     Indication: Ovarian cancer
     Dosage: UNK UNK, UNK, 11 CYCLES
     Route: 042
     Dates: start: 202310

REACTIONS (2)
  - Rash [Recovered/Resolved]
  - Solar lentigo [Unknown]

NARRATIVE: CASE EVENT DATE: 20240601
